FAERS Safety Report 25998012 (Version 1)
Quarter: 2025Q4

REPORT INFORMATION
  Report Type: Report from Study
  Country: US (occurrence: US)
  Receive Date: 20251105
  Receipt Date: 20251105
  Transmission Date: 20260117
  Serious: Yes (Other)
  Sender: ACADIA PHARMACEUTICALS
  Company Number: US-ACADIA PHARMACEUTICALS INC.-ACA-2025-PIM-011892

PATIENT
  Sex: Female

DRUGS (7)
  1. NUPLAZID [Suspect]
     Active Substance: PIMAVANSERIN TARTRATE
     Indication: Parkinson^s disease
     Dosage: 34 MILLIGRAM, QD (AT BEDTIME)
     Route: 048
     Dates: start: 20241024
  2. CARBIDOPA\LEVODOPA [Concomitant]
     Active Substance: CARBIDOPA\LEVODOPA
  3. DONEPEZIL [Concomitant]
     Active Substance: DONEPEZIL
  4. ESCITALOPRAM [Concomitant]
     Active Substance: ESCITALOPRAM OXALATE
  5. LIDOCAINE [Concomitant]
     Active Substance: LIDOCAINE
     Dosage: 35.44 GRAM
     Route: 061
  6. VALACYCLOVIR [Concomitant]
     Active Substance: VALACYCLOVIR HYDROCHLORIDE
  7. RASAGILINE [Concomitant]
     Active Substance: RASAGILINE

REACTIONS (1)
  - Hallucination [Not Recovered/Not Resolved]
